FAERS Safety Report 7059182-8 (Version None)
Quarter: 2010Q4

REPORT INFORMATION
  Report Type: 
  Country: None (occurrence: None)
  Receive Date: 20101025
  Receipt Date: 20101013
  Transmission Date: 20110411
  Serious: No
  Sender: FDA-Public Use
  Company Number: US-BIOGENIDEC-2010BI036219

PATIENT
  Sex: Female

DRUGS (2)
  1. TYSABRI [Suspect]
     Indication: MULTIPLE SCLEROSIS
     Route: 042
     Dates: start: 20090811
  2. FLU SHOT [Concomitant]

REACTIONS (4)
  - BALANCE DISORDER [None]
  - FATIGUE [None]
  - INFLUENZA [None]
  - RESPIRATORY TRACT INFECTION [None]
